FAERS Safety Report 8802712 (Version 1)
Quarter: 2012Q4

REPORT INFORMATION
  Report Type: 
  Country: CO (occurrence: CO)
  Receive Date: 20120921
  Receipt Date: 20120921
  Transmission Date: 20130627
  Serious: Yes (Hospitalization)
  Sender: FDA-Public Use
  Company Number: CO-009507513-1209COL006844

PATIENT
  Age: 55 Year
  Sex: Male

DRUGS (3)
  1. PEGINTERFERON ALFA-2B [Suspect]
     Indication: HEPATITIS C
     Dosage: 100 Microgram, UNK
     Route: 065
     Dates: start: 20120719
  2. VICTRELIS [Suspect]
     Indication: HEPATITIS C
     Dosage: UNK
     Route: 048
     Dates: start: 20120719
  3. RIBAVIRIN [Suspect]
     Dosage: UNK
     Route: 048
     Dates: start: 20120719

REACTIONS (1)
  - Encephalopathy [Unknown]
